FAERS Safety Report 11388613 (Version 1)
Quarter: 2015Q3

REPORT INFORMATION
  Report Type: Spontaneous
  Country: US (occurrence: US)
  Receive Date: 20150817
  Receipt Date: 20150817
  Transmission Date: 20151125
  Serious: No
  Sender: FDA-Public Use
  Company Number: US-PFIZER INC-2015269157

PATIENT
  Sex: Male

DRUGS (1)
  1. ZOLOFT [Suspect]
     Active Substance: SERTRALINE HYDROCHLORIDE
     Dosage: 25 MG, 3X/DAY

REACTIONS (4)
  - Drug prescribing error [Unknown]
  - Eye pain [Recovered/Resolved]
  - Anxiety [Recovered/Resolved]
  - Intraocular pressure increased [Recovered/Resolved]
